FAERS Safety Report 11247785 (Version 2)
Quarter: 2015Q3

REPORT INFORMATION
  Report Type: Report from Study
  Country: JP (occurrence: JP)
  Receive Date: 20150708
  Receipt Date: 20150720
  Transmission Date: 20151125
  Serious: Yes (Death)
  Sender: FDA-Public Use
  Company Number: JP-PFIZER INC-2015227444

PATIENT
  Age: 84 Year
  Sex: Female
  Weight: 44 kg

DRUGS (8)
  1. ATELEC [Suspect]
     Active Substance: CILNIDIPINE
     Indication: HYPERTENSION
     Dosage: 10 MG, 1X/DAY
     Route: 048
     Dates: start: 20081101, end: 20150119
  2. MEMARY [Suspect]
     Active Substance: MEMANTINE HYDROCHLORIDE
     Indication: DEMENTIA ALZHEIMER^S TYPE
     Dosage: 10 MG, 1X/DAY
     Route: 048
     Dates: start: 20130316, end: 20150119
  3. OLMETEC [Suspect]
     Active Substance: OLMESARTAN MEDOXOMIL
     Indication: HYPERTENSION
     Dosage: 10 MG, 1X/DAY
     Route: 048
     Dates: start: 20081025, end: 20150119
  4. LIPITOR [Suspect]
     Active Substance: ATORVASTATIN CALCIUM
     Indication: HYPERLIPIDAEMIA
     Dosage: 5 MG, 1X/DAY
     Route: 048
     Dates: start: 20081025, end: 20150119
  5. EPINEPHRINE. [Concomitant]
     Active Substance: EPINEPHRINE
     Dosage: UNK
     Dates: start: 20150119, end: 20150119
  6. CALCIUM GLUCONAT [Concomitant]
     Active Substance: CALCIUM GLUCONATE
     Dosage: UNK
     Dates: start: 20150119, end: 20150119
  7. ARICEPT [Suspect]
     Active Substance: DONEPEZIL HYDROCHLORIDE
     Indication: DEMENTIA ALZHEIMER^S TYPE
     Dosage: 5 MG, 1X/DAY
     Route: 048
     Dates: start: 20130209, end: 20150119
  8. YOKUKANSAN [Suspect]
     Active Substance: HERBALS
     Indication: DEMENTIA ALZHEIMER^S TYPE
     Dosage: 2.5 G, 3X/DAY
     Route: 048
     Dates: start: 20130702, end: 20150119

REACTIONS (1)
  - Drowning [Fatal]

NARRATIVE: CASE EVENT DATE: 20150119
